FAERS Safety Report 8088319-7 (Version None)
Quarter: 2012Q1

REPORT INFORMATION
  Report Type: 
  Country: None (occurrence: None)
  Receive Date: 20120128
  Receipt Date: 20110503
  Transmission Date: 20120608
  Serious: No
  Sender: FDA-Public Use
  Company Number: US-ABBOTT-11P-163-0723211-00

PATIENT
  Age: 49 Year
  Sex: Female

DRUGS (6)
  1. HYDROXYCHLOROQUINE SULFATE [Concomitant]
     Indication: RHEUMATOID ARTHRITIS
     Dosage: 300 MG DAILY
  2. VIMOVO [Concomitant]
     Indication: RHEUMATOID ARTHRITIS
     Dosage: 500/200 MG BID
  3. CLONAZEPAM [Concomitant]
     Indication: HYPOTONIA
  4. HUMIRA [Suspect]
     Indication: RHEUMATOID ARTHRITIS
     Dates: start: 20110101
  5. VITAMIN D [Concomitant]
     Indication: VITAMIN SUPPLEMENTATION
     Dosage: 1000 MG DAILY
  6. TRAZODONE HCL [Concomitant]
     Indication: INSOMNIA
     Dosage: 1/2 TAB AT BEDTIME

REACTIONS (1)
  - INFLUENZA LIKE ILLNESS [None]
